FAERS Safety Report 5401035-2 (Version None)
Quarter: 2007Q3

REPORT INFORMATION
  Report Type: 
  Country: None (occurrence: None)
  Receive Date: 20070731
  Receipt Date: 20070724
  Transmission Date: 20080115
  Serious: Yes (Death, Life-Threatening, Hospitalization)
  Sender: FDA-Public Use
  Company Number: US-AVENTIS-200715760GDDC

PATIENT
  Age: 58 Year
  Sex: Female
  Weight: 136.9 kg

DRUGS (12)
  1. TAXOTERE [Suspect]
     Dates: start: 20070615, end: 20070615
  2. BEVACIZUMAB [Suspect]
     Dates: start: 20070615, end: 20070615
  3. CYCLOPHOSPHAMIDE [Suspect]
     Dates: start: 20070615, end: 20070615
  4. DOXORUBICIN HCL [Suspect]
     Dosage: DOSE: UNK
     Dates: start: 20070615, end: 20070615
  5. LISINOPRIL [Concomitant]
  6. EFFEXOR [Concomitant]
  7. OMEGA 3 [Concomitant]
  8. ALEVE [Concomitant]
     Indication: PAIN
     Dosage: DOSE: 2 TABS
  9. ASPIRIN [Concomitant]
     Indication: HEADACHE
     Dosage: DOSE: 3 TABS
  10. DECADRON [Concomitant]
  11. PHENERGAN HCL [Concomitant]
     Route: 054
  12. EMEND [Concomitant]
     Dosage: DOSE: 80/125

REACTIONS (1)
  - SEPTIC SHOCK [None]
